FAERS Safety Report 7954817-7 (Version None)
Quarter: 2011Q4

REPORT INFORMATION
  Report Type: 
  Country: None (occurrence: None)
  Receive Date: 20111202
  Receipt Date: 20111129
  Transmission Date: 20120403
  Serious: No
  Sender: FDA-Public Use
  Company Number: US-TEVA-311514USA

PATIENT
  Sex: Female
  Weight: 63.56 kg

DRUGS (6)
  1. LUNESTA [Concomitant]
     Indication: SLEEP DISORDER DUE TO GENERAL MEDICAL CONDITION, HYPERSOMNIA TYPE
     Route: 048
  2. SYMBICORT [Concomitant]
     Indication: ASTHMA
     Route: 048
  3. PLAN B ONE-STEP [Suspect]
     Indication: POST COITAL CONTRACEPTION
     Dosage: 1.5 MILLIGRAM;
     Route: 048
     Dates: start: 20111123, end: 20111123
  4. NUVIGIL [Concomitant]
     Indication: SLEEP DISORDER DUE TO GENERAL MEDICAL CONDITION, HYPERSOMNIA TYPE
     Route: 048
  5. SIMPONI [Concomitant]
     Indication: ARTHRITIS
  6. DICLOFENAC [Concomitant]
     Indication: ARTHRITIS
     Route: 048

REACTIONS (3)
  - NAUSEA [None]
  - PELVIC PAIN [None]
  - MENSTRUATION IRREGULAR [None]
